FAERS Safety Report 4534928-9 (Version None)
Quarter: 2004Q4

REPORT INFORMATION
  Report Type: 
  Country: None (occurrence: None)
  Receive Date: 20041222
  Receipt Date: 20040820
  Transmission Date: 20050328
  Serious: No
  Sender: FDA-Public Use
  Company Number: US-BRISTOL-MYERS SQUIBB COMPANY-12678447

PATIENT
  Age: 57 Year
  Sex: Female
  Weight: 73 kg

DRUGS (3)
  1. PRAVACHOL [Suspect]
     Indication: BLOOD CHOLESTEROL INCREASED
     Route: 048
     Dates: start: 20040816
  2. METHOTREXATE [Concomitant]
  3. GLIPIZIDE [Concomitant]

REACTIONS (3)
  - INSOMNIA [None]
  - MUSCLE CRAMP [None]
  - MYALGIA [None]
